FAERS Safety Report 4431809-6 (Version None)
Quarter: 2004Q3

REPORT INFORMATION
  Report Type: 
  Country: None (occurrence: None)
  Receive Date: 20040818
  Receipt Date: 20040730
  Transmission Date: 20050211
  Serious: Yes (Hospitalization)
  Sender: FDA-Public Use
  Company Number: USA040670192

PATIENT
  Age: 14 Year
  Sex: Female
  Weight: 89 kg

DRUGS (1)
  1. STRATTERA [Suspect]
     Indication: ATTENTION DEFICIT/HYPERACTIVITY DISORDER
     Dosage: 80 MG/1 DAY
     Dates: start: 20040101, end: 20040501

REACTIONS (4)
  - ABDOMINAL PAIN [None]
  - MUSCLE CRAMP [None]
  - MUSCLE SPASMS [None]
  - WEIGHT DECREASED [None]
